FAERS Safety Report 20136824 (Version 3)
Quarter: 2022Q1

REPORT INFORMATION
  Report Type: Report from Study
  Country: GB (occurrence: GB)
  Receive Date: 20211201
  Receipt Date: 20220121
  Transmission Date: 20220423
  Serious: Yes (Hospitalization)
  Sender: FDA-Public Use
  Company Number: GB-NOVARTISPH-NVSC2021GB263845

PATIENT
  Sex: Female

DRUGS (1)
  1. HYRIMOZ [Suspect]
     Active Substance: ADALIMUMAB-ADAZ
     Indication: Rheumatoid arthritis
     Dosage: 40 MG, Q2W (FORTNIGHTLY)
     Route: 058
     Dates: start: 20211109

REACTIONS (4)
  - Malaise [Unknown]
  - Pulmonary embolism [Unknown]
  - Lower respiratory tract infection [Unknown]
  - Product dose omission issue [Unknown]
